FAERS Safety Report 13976909 (Version 7)
Quarter: 2018Q3

REPORT INFORMATION
  Report Type: Spontaneous
  Country: US (occurrence: US)
  Receive Date: 20170915
  Receipt Date: 20180905
  Transmission Date: 20181010
  Serious: Yes (Hospitalization, Other)
  Sender: FDA-Public Use
  Company Number: US-BIOGEN-2017BI00456338

PATIENT
  Age: 50 Year
  Sex: Male

DRUGS (3)
  1. TYSABRI [Suspect]
     Active Substance: NATALIZUMAB
     Dosage: INFUSED OVER 1 HOUR
     Route: 042
     Dates: start: 20150101, end: 20170720
  2. TYSABRI [Suspect]
     Active Substance: NATALIZUMAB
     Indication: MULTIPLE SCLEROSIS
     Dosage: INFUSED OVER 1 HOUR
     Route: 042
     Dates: start: 20100101
  3. TYSABRI [Suspect]
     Active Substance: NATALIZUMAB
     Dosage: INFUSED OVER 1 HOUR
     Route: 042
     Dates: start: 20100408, end: 20150101

REACTIONS (3)
  - Progressive multifocal leukoencephalopathy [Not Recovered/Not Resolved]
  - Immune reconstitution inflammatory syndrome [Recovered/Resolved with Sequelae]
  - Prescribed underdose [Recovered/Resolved]

NARRATIVE: CASE EVENT DATE: 20150101
